FAERS Safety Report 5918544-X (Version None)
Quarter: 2008Q4

REPORT INFORMATION
  Report Type: 
  Country: None (occurrence: None)
  Receive Date: 20081015
  Receipt Date: 20081008
  Transmission Date: 20090506
  Serious: Yes (Other)
  Sender: FDA-Public Use
  Company Number: BR-ASTRAZENECA-2008UW22224

PATIENT
  Sex: Female

DRUGS (5)
  1. NEXIUM [Suspect]
     Route: 048
  2. SIMVASTATIN [Concomitant]
  3. FLUOXETINE [Concomitant]
  4. FLUNARIZINE [Concomitant]
  5. MEASLES VACCINE [Concomitant]

REACTIONS (1)
  - INDUCED ABORTION FAILED [None]
